FAERS Safety Report 9431558 (Version 1)
Quarter: 2013Q3

REPORT INFORMATION
  Report Type: Spontaneous
  Country: GB (occurrence: GB)
  Receive Date: 20130731
  Receipt Date: 20130731
  Transmission Date: 20140515
  Serious: Yes (Death, Other)
  Sender: FDA-Public Use
  Company Number: PHHY2013GB079780

PATIENT
  Age: 47 Year
  Sex: Female

DRUGS (4)
  1. VORICONAZOLE [Suspect]
     Indication: BRONCHOPULMONARY ASPERGILLOSIS
     Dosage: 250 MG, QD
     Dates: start: 200602
  2. ITRACONAZOLE [Suspect]
     Indication: BRONCHOPULMONARY ASPERGILLOSIS
     Dosage: 200 MG, BID
     Dates: start: 1998
  3. POSACONAZOLE [Suspect]
     Indication: BRONCHOPULMONARY ASPERGILLOSIS
     Dosage: 200 MG, QID
     Dates: start: 200606
  4. AMPHOTERICIN B [Concomitant]
     Indication: BRONCHOPULMONARY ASPERGILLOSIS
     Dosage: 1 MG/KG, UNK
     Route: 042

REACTIONS (7)
  - Aspergilloma [Fatal]
  - Sepsis [Fatal]
  - Pathogen resistance [Unknown]
  - Drug intolerance [Unknown]
  - Head discomfort [Unknown]
  - Insomnia [Unknown]
  - Drug ineffective [Unknown]
